FAERS Safety Report 19061851 (Version 1)
Quarter: 2021Q1

REPORT INFORMATION
  Report Type: Spontaneous
  Country: US (occurrence: US)
  Receive Date: 20210326
  Receipt Date: 20210326
  Transmission Date: 20210420
  Serious: No
  Sender: FDA-Public Use
  Company Number: US-BAYER-2021-109936

PATIENT
  Weight: 41.72 kg

DRUGS (2)
  1. MIRALAX [Suspect]
     Active Substance: POLYETHYLENE GLYCOL 3350
  2. LAXATIVE [BISACODYL] [Concomitant]
     Active Substance: BISACODYL

REACTIONS (1)
  - Diarrhoea [Unknown]
